FAERS Safety Report 17834208 (Version 2)
Quarter: 2020Q2

REPORT INFORMATION
  Report Type: Spontaneous
  Country: IT (occurrence: IT)
  Receive Date: 20200528
  Receipt Date: 20200604
  Transmission Date: 20200714
  Serious: Yes (Other)
  Sender: FDA-Public Use
  Company Number: IT-IBIGEN-2020.08850

PATIENT
  Age: 19 Year
  Sex: Female
  Weight: 0 kg

DRUGS (2)
  1. TEICOPLANIN [Concomitant]
     Active Substance: TEICOPLANIN
  2. PIPERACILLINA E TAZOBACTAM IBIGEN 2G/0,25G POLVERE PER SOLUZIONE PER I [Suspect]
     Active Substance: PIPERACILLIN SODIUM\TAZOBACTAM SODIUM
     Indication: PYELONEPHRITIS
     Route: 042
     Dates: start: 20200514, end: 20200514

REACTIONS (4)
  - Pruritus [Recovered/Resolved]
  - Cough [Recovered/Resolved]
  - Eosinophil count increased [Recovered/Resolved]
  - Neutropenia [Recovered/Resolved]

NARRATIVE: CASE EVENT DATE: 20200514
